FAERS Safety Report 6762446-6 (Version None)
Quarter: 2010Q2

REPORT INFORMATION
  Report Type: 
  Country: None (occurrence: None)
  Receive Date: 20100609
  Receipt Date: 20100528
  Transmission Date: 20101027
  Serious: Yes (Death, Hospitalization, Other)
  Sender: FDA-Public Use
  Company Number: FR-ELI_LILLY_AND_COMPANY-FR201004003977

PATIENT
  Age: 65 Year
  Sex: Male

DRUGS (1)
  1. ZYPREXA [Suspect]
     Indication: BRIEF PSYCHOTIC DISORDER WITH MARKED STRESSORS
     Dosage: 5 MG, DAILY (1/D)
     Route: 048
     Dates: end: 20100327

REACTIONS (6)
  - CEREBRAL ISCHAEMIA [None]
  - CHOREOATHETOSIS [None]
  - DYSKINESIA [None]
  - DYSPHAGIA [None]
  - HEMIPARESIS [None]
  - HEMIPLEGIA [None]
